FAERS Safety Report 16076965 (Version 1)
Quarter: 2019Q1

REPORT INFORMATION
  Report Type: Spontaneous
  Country: US (occurrence: US)
  Receive Date: 20190214
  Receipt Date: 20190214
  Transmission Date: 20190418
  Serious: No
  Sender: FDA-Public Use
  Company Number: None

PATIENT
  Age: 59 Year
  Sex: Female

DRUGS (2)
  1. MYCOPHENOLATE MOFETIL 500MG TABLET [Suspect]
     Active Substance: MYCOPHENOLATE MOFETIL
     Dates: start: 20181124
  2. CYMBALTA [Concomitant]
     Active Substance: DULOXETINE HYDROCHLORIDE

REACTIONS (3)
  - Pain in extremity [None]
  - Palmar erythema [None]
  - Dermatitis allergic [None]

NARRATIVE: CASE EVENT DATE: 20190114
